FAERS Safety Report 8941880 (Version 1)
Quarter: 2012Q4

REPORT INFORMATION
  Report Type: 
  Country: NL (occurrence: NL)
  Receive Date: 20121203
  Receipt Date: 20121203
  Transmission Date: 20130627
  Serious: Yes (Hospitalization)
  Sender: FDA-Public Use
  Company Number: NL-ELI_LILLY_AND_COMPANY-NL201211007071

PATIENT
  Sex: Female
  Weight: 80 kg

DRUGS (5)
  1. FORSTEO [Suspect]
     Indication: OSTEOPOROSIS
     Dosage: 20 ug, qd
     Route: 058
     Dates: start: 20120330
  2. FUROSEMIDE [Concomitant]
     Indication: FLUID RETENTION
     Dosage: 40 mg, bid
     Route: 048
     Dates: start: 2006
  3. IRBESARTAN [Concomitant]
     Indication: HYPERTENSION
     Dosage: 150 mg, qd
     Route: 048
     Dates: start: 2006
  4. PARACETAMOL WITH CODEINE [Concomitant]
     Indication: PAIN
     Dosage: UNK, every 6 hrs
     Route: 048
  5. BUPRENORPHINE [Concomitant]
     Indication: PAIN
     Dosage: 1 DF, weekly (1/W)
     Route: 062

REACTIONS (2)
  - Ovarian enlargement [Not Recovered/Not Resolved]
  - Anaemia [Not Recovered/Not Resolved]
